FAERS Safety Report 21493906 (Version 2)
Quarter: 2022Q4

REPORT INFORMATION
  Report Type: Report from Study
  Country: US (occurrence: US)
  Receive Date: 20221021
  Receipt Date: 20221209
  Transmission Date: 20230113
  Serious: No
  Sender: FDA-Public Use
  Company Number: US-ABBVIE-4160022

PATIENT
  Sex: Male

DRUGS (1)
  1. IMBRUVICA [Suspect]
     Active Substance: IBRUTINIB
     Indication: Chronic lymphocytic leukaemia
     Route: 048
     Dates: start: 202210, end: 2022

REACTIONS (6)
  - White blood cell count decreased [Recovered/Resolved]
  - Dehydration [Unknown]
  - Visual impairment [Recovering/Resolving]
  - Headache [Unknown]
  - Dizziness [Unknown]
  - Adverse reaction [Unknown]
